FAERS Safety Report 8777486 (Version 2)
Quarter: 2012Q4

REPORT INFORMATION
  Report Type: 
  Country: US (occurrence: US)
  Receive Date: 20120911
  Receipt Date: 20120926
  Transmission Date: 20130627
  Serious: Yes (Other)
  Sender: FDA-Public Use
  Company Number: US-PFIZER INC-2012219938

PATIENT
  Age: 62 Year
  Sex: Male
  Weight: 79.37 kg

DRUGS (6)
  1. VIAGRA [Suspect]
     Indication: ERECTILE DYSFUNCTION
     Dosage: 100 mg, as needed
     Dates: start: 201201
  2. MOBIC [Concomitant]
     Indication: RHEUMATOID ARTHRITIS
     Dosage: 15 mg, 1x/day
  3. IMURAN [Concomitant]
     Dosage: 50 mg, 3x/day
  4. PRILOSEC [Concomitant]
     Dosage: UNK, daily
  5. PREDNISONE [Concomitant]
     Indication: RHEUMATOID ARTHRITIS
     Dosage: 5 mg in morning and 2.5 mg in afternoon
  6. PLAQUENIL [Concomitant]
     Indication: SYSTEMIC LUPUS ERYTHEMATOSUS
     Dosage: 200 mg, 2x/day

REACTIONS (1)
  - Tooth loss [Unknown]
